FAERS Safety Report 6227789-3 (Version None)
Quarter: 2009Q2

REPORT INFORMATION
  Report Type: 
  Country: None (occurrence: None)
  Receive Date: 20090612
  Receipt Date: 20090608
  Transmission Date: 20091009
  Serious: Yes (Other)
  Sender: FDA-Public Use
  Company Number: US-TEVA-197834USA

PATIENT
  Sex: Female

DRUGS (2)
  1. CRYSELLE [Suspect]
     Indication: ORAL CONTRACEPTION
     Route: 048
     Dates: start: 20090416, end: 20090420
  2. EUGYNON [Suspect]
     Indication: ORAL CONTRACEPTION
     Route: 048
     Dates: start: 20090101, end: 20090415

REACTIONS (7)
  - ANGER [None]
  - ANXIETY [None]
  - DEPRESSION [None]
  - HEADACHE [None]
  - NAUSEA [None]
  - PARANOIA [None]
  - SUICIDAL IDEATION [None]
